FAERS Safety Report 7490655-X (Version None)
Quarter: 2011Q2

REPORT INFORMATION
  Report Type: 
  Country: None (occurrence: None)
  Receive Date: 20110519
  Receipt Date: 20110516
  Transmission Date: 20111010
  Serious: Yes (Disabling)
  Sender: FDA-Public Use
  Company Number: GB-PFIZER INC-2011105108

PATIENT
  Age: 38 Year
  Sex: Female
  Weight: 64 kg

DRUGS (3)
  1. TEMAZEPAM [Concomitant]
     Dosage: UNK
     Dates: start: 20110307, end: 20110404
  2. VARENICLINE TARTRATE [Suspect]
     Dosage: UNK
     Dates: start: 20110314
  3. SERTRALINE [Concomitant]
     Dosage: UNK
     Dates: start: 20110112, end: 20110404

REACTIONS (4)
  - INSOMNIA [None]
  - MANIA [None]
  - TACHYPHRENIA [None]
  - AGITATION [None]
